FAERS Safety Report 18490265 (Version 2)
Quarter: 2020Q4

REPORT INFORMATION
  Report Type: Spontaneous
  Country: US (occurrence: US)
  Receive Date: 20201111
  Receipt Date: 20201210
  Transmission Date: 20210114
  Serious: No
  Sender: FDA-Public Use
  Company Number: US-SA-2019SA071863

PATIENT

DRUGS (3)
  1. CEREZYME [Suspect]
     Active Substance: IMIGLUCERASE
     Indication: GAUCHER^S DISEASE
     Dosage: 8000 U (UNITS), QOW
     Route: 041
     Dates: start: 20140304
  2. CEREZYME [Suspect]
     Active Substance: IMIGLUCERASE
     Dosage: 8000 U, QOW
     Route: 041
     Dates: start: 2015
  3. CEREZYME [Suspect]
     Active Substance: IMIGLUCERASE
     Dosage: 8000 U, QOW
     Route: 041
     Dates: start: 20160322

REACTIONS (2)
  - Weight decreased [Unknown]
  - Product dose omission issue [Unknown]
